FAERS Safety Report 17148154 (Version 1)
Quarter: 2019Q4

REPORT INFORMATION
  Report Type: Spontaneous
  Country: PL (occurrence: PL)
  Receive Date: 20191212
  Receipt Date: 20191212
  Transmission Date: 20200122
  Serious: Yes (Other)
  Sender: FDA-Public Use
  Company Number: PL-BAXTER-2019BAX025027

PATIENT
  Age: 12 Month
  Sex: Male

DRUGS (11)
  1. HOLOXAN [Suspect]
     Active Substance: IFOSFAMIDE
     Indication: DESMOID TUMOUR
  2. ENDOXAN [Suspect]
     Active Substance: CYCLOPHOSPHAMIDE
     Indication: FIBROMATOSIS
     Dosage: 3 VAC COURSES
     Route: 065
  3. HOLOXAN [Suspect]
     Active Substance: IFOSFAMIDE
     Indication: FIBROMATOSIS
  4. ACTINOMYCIN D [Suspect]
     Active Substance: DACTINOMYCIN
     Indication: DISEASE PROGRESSION
     Dosage: 3 VAC COURSES
     Route: 065
  5. ENDOXAN [Suspect]
     Active Substance: CYCLOPHOSPHAMIDE
     Indication: DESMOID TUMOUR
  6. HOLOXAN [Suspect]
     Active Substance: IFOSFAMIDE
     Indication: DISEASE PROGRESSION
     Dosage: THREE I3VA COURSES
     Route: 065
  7. ACTINOMYCIN D [Suspect]
     Active Substance: DACTINOMYCIN
     Indication: FIBROMATOSIS
     Dosage: THREE I3VA COURSES
     Route: 065
  8. VINCRISTINE [Suspect]
     Active Substance: VINCRISTINE
     Indication: DESMOID TUMOUR
  9. VINCRISTINE [Suspect]
     Active Substance: VINCRISTINE
     Indication: DISEASE PROGRESSION
     Dosage: 3 VAC COURSES
     Route: 065
  10. ACTINOMYCIN D [Suspect]
     Active Substance: DACTINOMYCIN
     Indication: DESMOID TUMOUR
  11. VINCRISTINE [Suspect]
     Active Substance: VINCRISTINE
     Indication: FIBROMATOSIS
     Dosage: THREE I3VA COURSES
     Route: 065

REACTIONS (2)
  - Hepatosplenomegaly [Unknown]
  - Drug ineffective [Unknown]
